FAERS Safety Report 18453036 (Version 4)
Quarter: 2021Q1

REPORT INFORMATION
  Report Type: Spontaneous
  Country: US (occurrence: US)
  Receive Date: 20201102
  Receipt Date: 20210325
  Transmission Date: 20210419
  Serious: No
  Sender: FDA-Public Use
  Company Number: US-GLAXOSMITHKLINE-US2020AMR216011

PATIENT
  Sex: Female

DRUGS (4)
  1. ZEJULA [Suspect]
     Active Substance: NIRAPARIB
     Dosage: 200 MG
     Dates: start: 20201008
  2. ZEJULA [Suspect]
     Active Substance: NIRAPARIB
     Indication: OVARIAN CANCER
     Dosage: 200 MG, QD
     Dates: start: 20201021
  3. ZEJULA [Suspect]
     Active Substance: NIRAPARIB
     Dosage: 2 DF, QD
  4. ZEJULA [Suspect]
     Active Substance: NIRAPARIB
     Dosage: 100 MG
     Dates: start: 20201007

REACTIONS (10)
  - Headache [Unknown]
  - Hepatic enzyme increased [Unknown]
  - Laboratory test abnormal [Unknown]
  - Alanine aminotransferase increased [Unknown]
  - Multiple allergies [Unknown]
  - Aspartate aminotransferase increased [Unknown]
  - Hepatic function abnormal [Unknown]
  - Adverse drug reaction [Unknown]
  - Incorrect dose administered [Unknown]
  - Cough [Unknown]
